APPROVED DRUG PRODUCT: CLOFARABINE
Active Ingredient: CLOFARABINE
Strength: 20MG/20ML (1MG/ML)
Dosage Form/Route: SOLUTION;INTRAVENOUS
Application: A210270 | Product #001
Applicant: NOVAST LABORATORIES LTD
Approved: Sep 14, 2018 | RLD: No | RS: No | Type: DISCN